FAERS Safety Report 5467843-7 (Version None)
Quarter: 2007Q3

REPORT INFORMATION
  Report Type: 
  Country: None (occurrence: None)
  Receive Date: 20070924
  Receipt Date: 20070907
  Transmission Date: 20080115
  Serious: Yes (Hospitalization, Other)
  Sender: FDA-Public Use
  Company Number: DSA_61570_2007

PATIENT
  Sex: Female
  Weight: 44.9968 kg

DRUGS (32)
  1. DIHYDROERGOTAMINE MESYLATE [Suspect]
     Indication: MIGRAINE
     Dosage: (3 MG ^3 T/D^ ORAL)
     Route: 048
     Dates: start: 19960101
  2. VOLTAREN [Suspect]
     Indication: DYSMENORRHOEA
     Dosage: (DF RECTAL), (DF RECTAL)
     Route: 054
     Dates: start: 19980301, end: 19980301
  3. VOLTAREN [Suspect]
     Indication: MIGRAINE
     Dosage: (DF RECTAL), (DF RECTAL)
     Route: 054
     Dates: start: 19980301, end: 19980301
  4. VOLTAREN [Suspect]
     Indication: TOOTHACHE
     Dosage: (DF RECTAL), (DF RECTAL)
     Route: 054
     Dates: start: 19980301, end: 19980301
  5. CLEAMINE (CLEAMINE-A) [Suspect]
     Indication: DYSMENORRHOEA
     Dosage: (10 TABLETS PER MONTH (T/M) ORAL), (2 T/DAY), (10T/WEEK AS SINGLE USE)
     Dates: start: 20000101, end: 20030116
  6. CLEAMINE (CLEAMINE-A) [Suspect]
     Indication: MIGRAINE
     Dosage: (10 TABLETS PER MONTH (T/M) ORAL), (2 T/DAY), (10T/WEEK AS SINGLE USE)
     Dates: start: 20000101, end: 20030116
  7. CLEAMINE (CLEAMINE-A) [Suspect]
     Indication: NASOPHARYNGITIS
     Dosage: (10 TABLETS PER MONTH (T/M) ORAL), (2 T/DAY), (10T/WEEK AS SINGLE USE)
     Dates: start: 20000101, end: 20030116
  8. CLEAMINE (CLEAMINE-A) [Suspect]
     Indication: DYSMENORRHOEA
     Dosage: (10 TABLETS PER MONTH (T/M) ORAL), (2 T/DAY), (10T/WEEK AS SINGLE USE)
     Dates: start: 19960101
  9. CLEAMINE (CLEAMINE-A) [Suspect]
     Indication: MIGRAINE
     Dosage: (10 TABLETS PER MONTH (T/M) ORAL), (2 T/DAY), (10T/WEEK AS SINGLE USE)
     Dates: start: 19960101
  10. CLEAMINE (CLEAMINE-A) [Suspect]
     Indication: NASOPHARYNGITIS
     Dosage: (10 TABLETS PER MONTH (T/M) ORAL), (2 T/DAY), (10T/WEEK AS SINGLE USE)
     Dates: start: 19960101
  11. CLEAMINE (CLEAMINE-A) [Suspect]
     Indication: DYSMENORRHOEA
     Dosage: (10 TABLETS PER MONTH (T/M) ORAL), (2 T/DAY), (10T/WEEK AS SINGLE USE)
     Dates: start: 19980501
  12. CLEAMINE (CLEAMINE-A) [Suspect]
     Indication: MIGRAINE
     Dosage: (10 TABLETS PER MONTH (T/M) ORAL), (2 T/DAY), (10T/WEEK AS SINGLE USE)
     Dates: start: 19980501
  13. CLEAMINE (CLEAMINE-A) [Suspect]
     Indication: NASOPHARYNGITIS
     Dosage: (10 TABLETS PER MONTH (T/M) ORAL), (2 T/DAY), (10T/WEEK AS SINGLE USE)
     Dates: start: 19980501
  14. BRUFEN (BRUFEN) (NOT SPECIFIED) [Suspect]
     Indication: DYSMENORRHOEA
     Dosage: (DF ORAL)
     Route: 048
     Dates: start: 19980402, end: 19990121
  15. BRUFEN (BRUFEN) (NOT SPECIFIED) [Suspect]
     Indication: HEADACHE
     Dosage: (DF ORAL)
     Route: 048
     Dates: start: 19980402, end: 19990121
  16. BRUFEN (BRUFEN) (NOT SPECIFIED) [Suspect]
     Indication: NASOPHARYNGITIS
     Dosage: (DF ORAL)
     Route: 048
     Dates: start: 19980402, end: 19990121
  17. IBU [Concomitant]
  18. SELBEX [Concomitant]
  19. MYONAL [Concomitant]
  20. CERCINE [Concomitant]
  21. HALCION [Concomitant]
  22. ZESULAN [Concomitant]
  23. NAUZELIN [Concomitant]
  24. ANAFRANIL [Concomitant]
  25. RESTAS [Concomitant]
  26. TRYPTANOL /00002201/ [Concomitant]
  27. LUDIOMIL /00331902/ [Concomitant]
  28. LEXOTAN [Concomitant]
  29. MAGNESIUM OXIDE [Concomitant]
  30. CEREKINON [Concomitant]
  31. GASCON [Concomitant]
  32. LORAZEPAM [Concomitant]

REACTIONS (9)
  - DRUG ABUSER [None]
  - DYSMENORRHOEA [None]
  - HEADACHE [None]
  - NASOPHARYNGITIS [None]
  - NO THERAPEUTIC RESPONSE [None]
  - PAIN [None]
  - PROCEDURAL PAIN [None]
  - TOOTH EXTRACTION [None]
  - TREATMENT FAILURE [None]
